FAERS Safety Report 25014543 (Version 1)
Quarter: 2025Q1

REPORT INFORMATION
  Report Type: Spontaneous
  Country: DE (occurrence: DE)
  Receive Date: 20250226
  Receipt Date: 20250226
  Transmission Date: 20250409
  Serious: Yes (Hospitalization, Other)
  Sender: NOVARTIS
  Company Number: None

PATIENT
  Age: 28 Year
  Sex: Male

DRUGS (1)
  1. TERBINAFINE [Suspect]
     Active Substance: TERBINAFINE
     Indication: Onychomycosis
     Route: 048
     Dates: start: 20240311, end: 20240711

REACTIONS (6)
  - Hypocalcaemia [Unknown]
  - Vitamin D deficiency [Unknown]
  - Hyperparathyroidism [Unknown]
  - Gastrooesophageal reflux disease [Unknown]
  - Gastritis [Unknown]
  - Electrocardiogram QT interval [Unknown]

NARRATIVE: CASE EVENT DATE: 20240711
